FAERS Safety Report 5821639-2 (Version None)
Quarter: 2008Q3

REPORT INFORMATION
  Report Type: 
  Country: None (occurrence: None)
  Receive Date: 20080714
  Receipt Date: 20070926
  Transmission Date: 20090109
  Serious: Yes (Other)
  Sender: FDA-Public Use
  Company Number: 521798

PATIENT
  Age: 78 Year
  Sex: Female

DRUGS (3)
  1. BONIVA [Suspect]
     Indication: OSTEOPOROSIS
     Dosage: 150 MG
     Dates: start: 20060101
  2. ARICEPT [Concomitant]
  3. PERCOCET (OXYCODONE/PARACETAMOL) [Concomitant]

REACTIONS (4)
  - FALL [None]
  - GASTRIC ULCER [None]
  - HAEMORRHAGE [None]
  - WRONG TECHNIQUE IN DRUG USAGE PROCESS [None]
